FAERS Safety Report 8270470-X (Version None)
Quarter: 2012Q2

REPORT INFORMATION
  Report Type: 
  Country: None (occurrence: None)
  Receive Date: 20120410
  Receipt Date: 20120403
  Transmission Date: 20120825
  Serious: Yes (Other)
  Sender: FDA-Public Use
  Company Number: DE-UCBSA-048879

PATIENT
  Age: 16 Year
  Sex: Female
  Weight: 49 kg

DRUGS (3)
  1. STRATTERA [Suspect]
     Dosage: 40 MG, 3 TABLET, TOTAL AMOUNT: 120 MG
     Route: 048
  2. KEPPRA [Suspect]
     Dosage: 250 MG, 6 TABLET, TOTAL AMOUNT: 1500 MG
     Route: 048
  3. ZONEGRAN [Suspect]
     Dosage: 100 MG, 10 TABLET, TOTAL AMOUNT: 1000 MG
     Route: 048

REACTIONS (1)
  - ACCIDENTAL EXPOSURE [None]
